FAERS Safety Report 4802721-5 (Version None)
Quarter: 2005Q4

REPORT INFORMATION
  Report Type: 
  Country: None (occurrence: None)
  Receive Date: 20051014
  Receipt Date: 20050312
  Transmission Date: 20060501
  Serious: Yes (Hospitalization, Other)
  Sender: FDA-Public Use
  Company Number: 2004013511

PATIENT
  Sex: Male

DRUGS (1)
  1. NEURONTIN [Suspect]
     Indication: BIPOLAR DISORDER
     Dates: start: 20020101

REACTIONS (7)
  - CONFUSIONAL STATE [None]
  - DEPRESSION [None]
  - FEELING ABNORMAL [None]
  - INSOMNIA [None]
  - SUICIDAL IDEATION [None]
  - SUICIDE ATTEMPT [None]
  - TINNITUS [None]
